FAERS Safety Report 7376827-3 (Version None)
Quarter: 2011Q1

REPORT INFORMATION
  Report Type: 
  Country: None (occurrence: None)
  Receive Date: 20110325
  Receipt Date: 20110317
  Transmission Date: 20110831
  Serious: Yes (Hospitalization, Other)
  Sender: FDA-Public Use
  Company Number: US-MERCK-1010USA03363

PATIENT
  Age: 56 Year
  Sex: Female
  Weight: 62 kg

DRUGS (10)
  1. FOSAMAX [Suspect]
     Route: 048
     Dates: start: 19990301
  2. FOSAMAX PLUS D [Suspect]
     Indication: OSTEOPENIA
     Route: 048
     Dates: start: 20071101, end: 20080801
  3. FOSAMAX [Suspect]
     Route: 048
     Dates: start: 20040708, end: 20070412
  4. FOSAMAX [Suspect]
     Indication: OSTEOPOROSIS
     Route: 048
     Dates: start: 19970601, end: 19990101
  5. FOSAMAX PLUS D [Suspect]
     Indication: OSTEOPOROSIS
     Route: 048
     Dates: start: 20071101, end: 20080801
  6. FOSAMAX [Suspect]
     Indication: OSTEOPENIA
     Route: 048
     Dates: start: 19970601, end: 19990101
  7. FOSAMAX [Suspect]
     Route: 048
     Dates: start: 20040708, end: 20070412
  8. BETOPTIC [Concomitant]
     Indication: GLAUCOMA
     Route: 065
     Dates: start: 19911001
  9. FOSAMAX [Suspect]
     Route: 048
     Dates: start: 19990301
  10. PREMARIN [Concomitant]
     Indication: MENOPAUSAL SYMPTOMS
     Route: 065
     Dates: start: 19931025

REACTIONS (30)
  - JOINT EFFUSION [None]
  - HYPOTHYROIDISM [None]
  - BONE DISORDER [None]
  - ALANINE AMINOTRANSFERASE INCREASED [None]
  - HEADACHE [None]
  - SPIDER VEIN [None]
  - PERIARTHRITIS [None]
  - OTITIS MEDIA [None]
  - ANAEMIA [None]
  - ANXIETY [None]
  - OSTEONECROSIS [None]
  - VITAMIN D DEFICIENCY [None]
  - UPPER RESPIRATORY TRACT INFECTION [None]
  - DIARRHOEA [None]
  - FACIAL BONES FRACTURE [None]
  - KERATOCONJUNCTIVITIS SICCA [None]
  - CONTUSION [None]
  - DEPRESSION [None]
  - RECTAL HAEMORRHAGE [None]
  - DIZZINESS [None]
  - HAEMORRHOIDS [None]
  - FEMUR FRACTURE [None]
  - GOITRE [None]
  - LOW TURNOVER OSTEOPATHY [None]
  - IMPAIRED HEALING [None]
  - WEIGHT DECREASED [None]
  - THYROID NEOPLASM [None]
  - INSOMNIA [None]
  - HYPERTHYROIDISM [None]
  - FALL [None]
